FAERS Safety Report 24412828 (Version 1)
Quarter: 2024Q4

REPORT INFORMATION
  Report Type: Spontaneous
  Country: US (occurrence: US)
  Receive Date: 20241008
  Receipt Date: 20241008
  Transmission Date: 20250114
  Serious: No
  Sender: NOVARTIS
  Company Number: US-002147023-NVSC2024US197929

PATIENT

DRUGS (1)
  1. ENTRESTO [Suspect]
     Active Substance: SACUBITRIL\VALSARTAN
     Indication: Product used for unknown indication
     Dosage: UNK, BID (TWO A DAY ONCE IN THE MORNING AND ONE AT NIGHT)
     Route: 065

REACTIONS (3)
  - Insomnia [Unknown]
  - Fatigue [Unknown]
  - Dizziness [Unknown]
